FAERS Safety Report 8426355-9 (Version None)
Quarter: 2012Q2

REPORT INFORMATION
  Report Type: 
  Country: None (occurrence: None)
  Receive Date: 20120611
  Receipt Date: 20120530
  Transmission Date: 20120825
  Serious: Yes (Death)
  Sender: FDA-Public Use
  Company Number: US-SANOFI-AVENTIS-2012SA038689

PATIENT
  Age: 58 Year
  Sex: Male

DRUGS (1)
  1. PLAVIX [Suspect]
     Dates: start: 20100101

REACTIONS (3)
  - ASPIRATION [None]
  - DEATH [None]
  - HAEMATEMESIS [None]
